FAERS Safety Report 15700700 (Version 2)
Quarter: 2019Q1

REPORT INFORMATION
  Report Type: Spontaneous
  Country: US (occurrence: US)
  Receive Date: 20181207
  Receipt Date: 20190222
  Transmission Date: 20190417
  Serious: No
  Sender: FDA-Public Use
  Company Number: US-SA-2018SA332609

PATIENT
  Sex: Female
  Weight: 72.5 kg

DRUGS (10)
  1. RANEXA [Concomitant]
     Active Substance: RANOLAZINE
  2. TRULICITY [Concomitant]
     Active Substance: DULAGLUTIDE
  3. ALIROCUMAB [Suspect]
     Active Substance: ALIROCUMAB
     Indication: HYPERLIPIDAEMIA
     Dosage: 150 MG, QOW
     Route: 058
     Dates: start: 2018
  4. ASPIRIN (E.C.) [Concomitant]
     Active Substance: ASPIRIN
  5. TYLENOL [Concomitant]
     Active Substance: ACETAMINOPHEN
  6. CARVEDILOL. [Concomitant]
     Active Substance: CARVEDILOL
  7. GLIPIZIDE. [Concomitant]
     Active Substance: GLIPIZIDE
  8. BRILINTA [Concomitant]
     Active Substance: TICAGRELOR
  9. ALIROCUMAB [Suspect]
     Active Substance: ALIROCUMAB
     Dosage: 75 UNK
     Route: 058
     Dates: start: 201809
  10. DICYCLOMINE HYDROCHLORIDE. [Concomitant]
     Active Substance: DICYCLOMINE HYDROCHLORIDE

REACTIONS (4)
  - Arthralgia [Unknown]
  - Product dose omission [Unknown]
  - Myalgia [Unknown]
  - Muscular weakness [Unknown]
